FAERS Safety Report 8904395 (Version 1)
Quarter: 2012Q4

REPORT INFORMATION
  Report Type: 
  Country: US (occurrence: US)
  Receive Date: 20121112
  Receipt Date: 20121112
  Transmission Date: 20130627
  Serious: Yes (Other)
  Sender: FDA-Public Use
  Company Number: US-BAYER-2012-118020

PATIENT

DRUGS (1)
  1. BACTINE [Suspect]
     Route: 048

REACTIONS (1)
  - Incorrect route of drug administration [None]
